FAERS Safety Report 21681545 (Version 2)
Quarter: 2023Q1

REPORT INFORMATION
  Report Type: Report from Study
  Country: US (occurrence: US)
  Receive Date: 20221205
  Receipt Date: 20230111
  Transmission Date: 20230417
  Serious: Yes (Other)
  Sender: FDA-Public Use
  Company Number: US-ASTELLAS-2022US042690

PATIENT
  Age: 70 Year
  Sex: Male

DRUGS (1)
  1. ENZALUTAMIDE [Suspect]
     Active Substance: ENZALUTAMIDE
     Indication: Product used for unknown indication
     Route: 065
     Dates: start: 20211208

REACTIONS (4)
  - Hallucination [Unknown]
  - Middle insomnia [Unknown]
  - Constipation [Unknown]
  - Confusional state [Unknown]

NARRATIVE: CASE EVENT DATE: 20221129
